FAERS Safety Report 9150662 (Version 1)
Quarter: 2013Q1

REPORT INFORMATION
  Report Type: Spontaneous
  Country: US (occurrence: None)
  Receive Date: 20130305
  Receipt Date: 20130305
  Transmission Date: 20140127
  Serious: Yes (Other)
  Sender: FDA-Public Use
  Company Number: None

PATIENT
  Age: 8 Year
  Sex: Female
  Weight: 24.04 kg

DRUGS (1)
  1. SINGULAIR [Suspect]
     Dosage: 30-SEP-2013

REACTIONS (9)
  - Panic attack [None]
  - Emotional disorder [None]
  - Nightmare [None]
  - Anxiety [None]
  - Restlessness [None]
  - Memory impairment [None]
  - Depression [None]
  - Abnormal behaviour [None]
  - Personality change [None]
